FAERS Safety Report 19501120 (Version 4)
Quarter: 2025Q1

REPORT INFORMATION
  Report Type: Spontaneous
  Country: IT (occurrence: IT)
  Receive Date: 20210707
  Receipt Date: 20250213
  Transmission Date: 20250408
  Serious: Yes (Death, Other)
  Sender: AUROBINDO
  Company Number: IT-AMGEN-ITASP2021093505

PATIENT
  Age: 45 Year
  Sex: Male

DRUGS (6)
  1. CINACALCET [Suspect]
     Active Substance: CINACALCET
     Indication: Product used for unknown indication
     Dosage: 60 MILLIGRAM, ONCE A DAY
     Route: 065
  2. CINACALCET [Suspect]
     Active Substance: CINACALCET
     Indication: Hypercalcaemia
     Dosage: 30 MILLIGRAM, ONCE A DAY
     Route: 065
  3. XGEVA [Suspect]
     Active Substance: DENOSUMAB
     Indication: Metastases to bone
     Route: 065
  4. EVEROLIMUS [Concomitant]
     Active Substance: EVEROLIMUS
     Indication: Product used for unknown indication
     Dosage: 10 MILLIGRAM, ONCE A DAY
     Route: 065
     Dates: start: 2010
  5. EVEROLIMUS [Concomitant]
     Active Substance: EVEROLIMUS
     Indication: Disease progression
     Dosage: 5 MILLIGRAM, ONCE A DAY
     Route: 065
     Dates: start: 2018
  6. ZOLEDRONIC ACID [Concomitant]
     Active Substance: ZOLEDRONIC ACID
     Indication: Product used for unknown indication
     Route: 042
     Dates: start: 201810, end: 201910

REACTIONS (5)
  - Death [Fatal]
  - Blood calcium increased [Fatal]
  - Pancreatic carcinoma metastatic [Fatal]
  - Drug ineffective [Fatal]
  - Osteonecrosis of jaw [Fatal]

NARRATIVE: CASE EVENT DATE: 20190101
